FAERS Safety Report 13064942 (Version 2)
Quarter: 2016Q4

REPORT INFORMATION
  Report Type: Spontaneous
  Country: IT (occurrence: IT)
  Receive Date: 20161227
  Receipt Date: 20161228
  Transmission Date: 20170207
  Serious: Yes (Other)
  Sender: FDA-Public Use
  Company Number: IT-PFIZER INC-2016595321

PATIENT
  Age: 42 Year
  Sex: Male

DRUGS (4)
  1. TAVOR (LORAZEPAM) [Suspect]
     Active Substance: LORAZEPAM
     Dosage: 2.5 MG, SINGLE
     Route: 048
     Dates: start: 20150905, end: 20150905
  2. LYRICA [Suspect]
     Active Substance: PREGABALIN
     Dosage: 675 MG, SINGLE
     Route: 048
     Dates: start: 20150905, end: 20150905
  3. PAROXETINE. [Suspect]
     Active Substance: PAROXETINE
     Dosage: 280 MG, SINGLE
     Route: 048
     Dates: start: 20150905, end: 20150905
  4. DEURSIL [Suspect]
     Active Substance: URSODIOL
     Dosage: 450 MG, SINGLE
     Route: 048
     Dates: start: 20150905, end: 20150905

REACTIONS (4)
  - Intentional self-injury [Unknown]
  - Accidental overdose [Unknown]
  - Drug abuse [Recovered/Resolved]
  - Intentional overdose [Unknown]

NARRATIVE: CASE EVENT DATE: 20150905
